FAERS Safety Report 10166570 (Version 1)
Quarter: 2014Q2

REPORT INFORMATION
  Report Type: Spontaneous
  Country: US (occurrence: None)
  Receive Date: 20140509
  Receipt Date: 20140509
  Transmission Date: 20141212
  Serious: No
  Sender: FDA-Public Use
  Company Number: None

PATIENT
  Age: 93 Year
  Sex: Female

DRUGS (3)
  1. FORTEO [Suspect]
     Indication: PRODUCT USED FOR UNKNOWN INDICATION
     Dosage: UNK-GIVEN SOMEWHERE ELSE
  2. SYNTHROID [Concomitant]
  3. HYDROCHLOROTHAZIDE [Concomitant]

REACTIONS (3)
  - Fatigue [None]
  - Arthralgia [None]
  - Dyspnoea [None]
